FAERS Safety Report 7421001-5 (Version None)
Quarter: 2011Q2

REPORT INFORMATION
  Report Type: 
  Country: None (occurrence: None)
  Receive Date: 20110418
  Receipt Date: 20110413
  Transmission Date: 20111010
  Serious: Yes (Other)
  Sender: FDA-Public Use
  Company Number: PHHY2011GB23533

PATIENT
  Age: 52 Year
  Sex: Male

DRUGS (4)
  1. VALPROIC ACID [Suspect]
     Indication: BIPOLAR DISORDER
     Dosage: 2 G, UNK
     Route: 048
     Dates: start: 20040101
  2. SERETIDE [Concomitant]
  3. VENTOLIN [Concomitant]
  4. RISPERIDONE [Suspect]
     Indication: BIPOLAR DISORDER
     Dates: start: 20070101

REACTIONS (1)
  - MEMORY IMPAIRMENT [None]
